FAERS Safety Report 11853686 (Version 1)
Quarter: 2015Q4

REPORT INFORMATION
  Report Type: Other
  Country: IN (occurrence: IN)
  Receive Date: 20151219
  Receipt Date: 20151219
  Transmission Date: 20160305
  Serious: Yes (Other)
  Sender: FDA-Public Use
  Company Number: IN-HETERO LABS LTD-1045683

PATIENT
  Age: 49 Year
  Sex: Male

DRUGS (6)
  1. TORSEMIDE. [Suspect]
     Active Substance: TORSEMIDE
     Indication: CHRONIC KIDNEY DISEASE
  2. CALCIUM ACETATE. [Concomitant]
     Active Substance: CALCIUM ACETATE
  3. FERROUS ASCORBATE [Concomitant]
  4. ANTIHISTAMINIC [Concomitant]
  5. CILNIDIPINE [Concomitant]
     Active Substance: CILNIDIPINE
  6. PARICALCITOL. [Concomitant]
     Active Substance: PARICALCITOL

REACTIONS (1)
  - Pseudoporphyria [Recovering/Resolving]
